FAERS Safety Report 7079043-8 (Version None)
Quarter: 2010Q4

REPORT INFORMATION
  Report Type: 
  Country: None (occurrence: None)
  Receive Date: 20101021
  Receipt Date: 20101006
  Transmission Date: 20110411
  Serious: Yes (Death, Hospitalization)
  Sender: FDA-Public Use
  Company Number: 2010BI034374

PATIENT
  Age: 72 Year
  Sex: Female

DRUGS (14)
  1. ZEVALIN [Suspect]
     Indication: FOLLICLE CENTRE LYMPHOMA, FOLLICULAR GRADE I, II, III STAGE IV
     Dosage: 477 MBQ; 1X; IVDRP
     Route: 041
     Dates: start: 20100309, end: 20100316
  2. RITUXIMAB [Concomitant]
  3. LOXONIN [Concomitant]
  4. POLARAMINE [Concomitant]
  5. ROHYPNOL [Concomitant]
  6. LEVOFLOXACIN [Concomitant]
  7. URSO 250 [Concomitant]
  8. PANCREAZE [Concomitant]
  9. NAUZELIN [Concomitant]
  10. PARIET [Concomitant]
  11. FLUDARABINE PHOSPHATE [Concomitant]
  12. RITUXIMAB [Concomitant]
  13. CLADRIBINE [Concomitant]
  14. FLUDEOXYGLUCOSE [Concomitant]

REACTIONS (8)
  - ASCITES [None]
  - COUGH [None]
  - HAEMOGLOBIN DECREASED [None]
  - HEPATIC FAILURE [None]
  - NEUTROPHIL COUNT DECREASED [None]
  - PLATELET COUNT DECREASED [None]
  - PLEURAL EFFUSION [None]
  - WHITE BLOOD CELL COUNT DECREASED [None]
